FAERS Safety Report 6193581-1 (Version None)
Quarter: 2009Q2

REPORT INFORMATION
  Report Type: 
  Country: None (occurrence: None)
  Receive Date: 20090514
  Receipt Date: 20090508
  Transmission Date: 20091009
  Serious: Yes (Hospitalization)
  Sender: FDA-Public Use
  Company Number: DAV-AE-PEN-09-001

PATIENT
  Age: 25 Year
  Sex: Male

DRUGS (1)
  1. PENICILLIN [Suspect]
     Indication: ACUTE TONSILLITIS

REACTIONS (2)
  - MYOPERICARDITIS [None]
  - STREPTOCOCCAL INFECTION [None]
